FAERS Safety Report 7474134-1 (Version None)
Quarter: 2011Q2

REPORT INFORMATION
  Report Type: 
  Country: None (occurrence: None)
  Receive Date: 20110511
  Receipt Date: 20110506
  Transmission Date: 20111010
  Serious: Yes (Hospitalization, Other)
  Sender: FDA-Public Use
  Company Number: JP-PFIZER INC-2011095047

PATIENT
  Age: 78 Year
  Sex: Female

DRUGS (28)
  1. CANDESARTAN CILEXETIL [Suspect]
     Dosage: 8 MG, 1X/DAY
     Route: 048
     Dates: start: 20080324, end: 20110108
  2. CANDESARTAN CILEXETIL [Suspect]
     Dosage: 4 MG, 1X/DAY
     Route: 048
     Dates: start: 20110219, end: 20110306
  3. CARVEDILOL [Suspect]
     Dosage: 5 MG, 1X/DAY
     Route: 048
     Dates: start: 20110119, end: 20110306
  4. LENDORMIN [Concomitant]
     Dosage: UNK
  5. MAGNESIUM OXIDE [Concomitant]
     Dosage: UNK
  6. CANDESARTAN CILEXETIL [Suspect]
     Dosage: 4 MG, 1X/DAY
     Route: 048
     Dates: start: 20110316
  7. PLAVIX [Concomitant]
     Dosage: UNK
  8. FAMOTIDINE [Concomitant]
     Dosage: UNK
  9. CELOOP KAYAKU [Concomitant]
     Dosage: UNK
  10. UBIRON [Concomitant]
     Dosage: UNK
     Dates: start: 20110316
  11. GASMOTIN [Concomitant]
     Dosage: UNK
     Dates: start: 20110316
  12. GLIMEPIRIDE [Suspect]
     Dosage: 1 MG, 1X/DAY
     Route: 048
     Dates: start: 20110219, end: 20110306
  13. ASCORBIC ACID [Concomitant]
     Dosage: UNK
  14. LIVALO [Suspect]
     Dosage: 1 MG, 1X/DAY
     Route: 048
     Dates: start: 20110316
  15. SOLDEM 3A [Concomitant]
     Dosage: UNK
     Dates: start: 20110307
  16. INSULIN 2 [Concomitant]
     Dosage: UNK
     Dates: start: 20110314
  17. MITIGLINIDE [Concomitant]
     Dosage: UNK
     Dates: start: 20110118, end: 20110202
  18. HEPARIN [Concomitant]
     Dosage: UNK
     Dates: start: 20110308, end: 20110309
  19. NIKORANMART [Concomitant]
     Dosage: UNK
     Dates: start: 20110316
  20. CANDESARTAN CILEXETIL [Suspect]
     Dosage: 2 MG, 1X/DAY
     Route: 048
     Dates: start: 20110109, end: 20110218
  21. GLIMEPIRIDE [Suspect]
     Dosage: 3 MG, 1X/DAY
     Route: 048
     Dates: start: 20081201, end: 20110218
  22. CARVEDILOL [Suspect]
     Dosage: 5 MG, 1X/DAY
     Route: 048
     Dates: start: 20110316
  23. GLIMEPIRIDE [Suspect]
     Dosage: 2 MG, 1X/DAY
     Route: 048
     Dates: start: 20080324, end: 20081201
  24. MIGLITOL [Suspect]
     Indication: DIABETES MELLITUS
     Dosage: 50 MG, 3X/DAY
     Route: 048
     Dates: start: 20081108, end: 20110306
  25. LIVALO [Suspect]
     Dosage: 1 MG, 1X/DAY
     Route: 048
     Dates: start: 20110119, end: 20110306
  26. ASPIRIN [Concomitant]
     Dosage: UNK
  27. SIGMART [Concomitant]
     Dosage: UNK
  28. AI-KENCHU-TO [Concomitant]
     Dosage: UNK
     Dates: start: 20110316

REACTIONS (2)
  - HEPATITIS C [None]
  - LIVER DISORDER [None]
